FAERS Safety Report 14708068 (Version 1)
Quarter: 2018Q2

REPORT INFORMATION
  Report Type: Spontaneous
  Country: US (occurrence: US)
  Receive Date: 20180403
  Receipt Date: 20180403
  Transmission Date: 20180711
  Serious: Yes (Other)
  Sender: FDA-Public Use
  Company Number: US-PFIZER INC-2018134423

PATIENT
  Age: 17 Year

DRUGS (1)
  1. ZOLOFT [Suspect]
     Active Substance: SERTRALINE HYDROCHLORIDE
     Dosage: UNK UNK, 1X/DAY
     Dates: end: 2009

REACTIONS (3)
  - Seizure [Unknown]
  - Tremor [Unknown]
  - Nausea [Unknown]
